FAERS Safety Report 17823576 (Version 1)
Quarter: 2020Q2

REPORT INFORMATION
  Report Type: Spontaneous
  Country: US (occurrence: US)
  Receive Date: 20200526
  Receipt Date: 20200526
  Transmission Date: 20200714
  Serious: No
  Sender: FDA-Public Use
  Company Number: US-PFIZER INC-2020203049

PATIENT
  Age: 59 Year
  Sex: Female
  Weight: 70.76 kg

DRUGS (4)
  1. HYDROCODONE [Suspect]
     Active Substance: HYDROCODONE
     Indication: PAIN
     Dosage: UNK UNK, AS NEEDED (7.5-325T ; ONE TAB BY MOUTH 4 TIMES DAILY AS NEEDED)
     Route: 048
  2. NARDIL [Suspect]
     Active Substance: PHENELZINE SULFATE
     Dosage: 15 MG, 3X/DAY (AND WORKED HER WAY UP TO THREE TABLETS A DAY)
  3. HYDROCODONE [Suspect]
     Active Substance: HYDROCODONE
     Indication: NEUROPATHY PERIPHERAL
  4. HYDROCODONE [Suspect]
     Active Substance: HYDROCODONE
     Indication: CHRONIC FATIGUE SYNDROME

REACTIONS (4)
  - Poor quality product administered [Unknown]
  - Drug ineffective [Unknown]
  - Hypotension [Unknown]
  - Product coating issue [Unknown]
